FAERS Safety Report 14150689 (Version 1)
Quarter: 2017Q4

REPORT INFORMATION
  Report Type: Spontaneous
  Country: FR (occurrence: FR)
  Receive Date: 20171101
  Receipt Date: 20171101
  Transmission Date: 20180321
  Serious: Yes (Hospitalization)
  Sender: FDA-Public Use
  Company Number: FR-ROCHE-2013277

PATIENT
  Age: 79 Year
  Sex: Female

DRUGS (5)
  1. COTELLIC [Suspect]
     Active Substance: COBIMETINIB
     Indication: METASTATIC MALIGNANT MELANOMA
     Dosage: SUBSEQUENT DOSES: 312 ON 07/JUL/2017 AND 347 ON 20/JUL/2017 (UNIT NOT REPORTED)
     Route: 048
     Dates: start: 20170622, end: 20170712
  2. TRAMETINIB [Concomitant]
     Active Substance: TRAMETINIB
  3. ZELBORAF [Suspect]
     Active Substance: VEMURAFENIB
     Indication: METASTATIC MALIGNANT MELANOMA
     Dosage: SUBSEQUENT DOSE : (NR} 40 MCG/ML): 60.0 MCG/ML ON 07/JUL/2017 AND 0.012 MCG/ML ON 20/JUL/2017.
     Route: 048
     Dates: start: 20170622, end: 20170717
  4. DABRAFENIB [Concomitant]
     Active Substance: DABRAFENIB
  5. PEMBROLIZUMAB. [Concomitant]
     Active Substance: PEMBROLIZUMAB

REACTIONS (3)
  - Purpura [Recovered/Resolved]
  - Cheilitis [Recovered/Resolved]
  - Rash maculo-papular [Recovered/Resolved]

NARRATIVE: CASE EVENT DATE: 20170709
